FAERS Safety Report 23843791 (Version 2)
Quarter: 2025Q3

REPORT INFORMATION
  Report Type: Spontaneous
  Country: EU (occurrence: EU)
  Receive Date: 20240510
  Receipt Date: 20250909
  Transmission Date: 20251021
  Serious: No
  Sender: NOVARTIS
  Company Number: EU-002147023-NVSC2024FR096537

PATIENT
  Age: 9 Year
  Sex: Male
  Weight: 44.6 kg

DRUGS (1)
  1. TRAMETINIB [Suspect]
     Active Substance: TRAMETINIB
     Indication: Glioma
     Dosage: 22 ML, QD, 1.1 MG/DAY (0.025MG/KG/DAY) I.E. 22 ML/DAY
     Route: 048

REACTIONS (1)
  - Off label use [Unknown]
